FAERS Safety Report 16232103 (Version 1)
Quarter: 2019Q2

REPORT INFORMATION
  Report Type: Spontaneous
  Country: DE (occurrence: DE)
  Receive Date: 20190424
  Receipt Date: 20190424
  Transmission Date: 20190711
  Serious: No
  Sender: FDA-Public Use
  Company Number: DE-HORMOSAN PHARMA GMBH-2018-08340

PATIENT
  Age: 30 Year
  Sex: Female

DRUGS (1)
  1. ZIPRASIDONE-HORMOSAN 40 MG HARTKAPSELN [Suspect]
     Active Substance: ZIPRASIDONE HYDROCHLORIDE
     Indication: SCHIZOPHRENIA
     Dosage: 1 DF, BID (1X IN MORNING AND 1X IN EVENING)
     Route: 048
     Dates: start: 2014

REACTIONS (2)
  - Respiratory disorder [Recovered/Resolved]
  - Female orgasmic disorder [Recovered/Resolved]

NARRATIVE: CASE EVENT DATE: 2015
